FAERS Safety Report 6574783-9 (Version None)
Quarter: 2010Q1

REPORT INFORMATION
  Report Type: 
  Country: None (occurrence: None)
  Receive Date: 20100209
  Receipt Date: 20100126
  Transmission Date: 20100710
  Serious: Yes (Disabling, Other)
  Sender: FDA-Public Use
  Company Number: PHHY2010FR00852

PATIENT
  Sex: Female
  Weight: 73 kg

DRUGS (10)
  1. ZOMETA [Suspect]
     Indication: BREAST CANCER METASTATIC
     Dosage: 4 MG, QMO
  2. XELODA [Suspect]
     Indication: BREAST CANCER
     Dosage: 1650 MF, BID
     Route: 048
     Dates: start: 20091218, end: 20091231
  3. NAVELBINE [Suspect]
     Indication: BREAST CANCER
     Dosage: 40 MG, UNK
     Route: 042
     Dates: start: 20091217
  4. PRIMPERAN TAB [Concomitant]
     Dosage: 10 MG PER DAY
     Route: 048
     Dates: start: 20091217, end: 20091217
  5. DURAGESIC-100 [Concomitant]
     Dosage: 100 UG/HR, UNK
     Route: 062
  6. ARANESP [Concomitant]
     Indication: ANAEMIA
     Dosage: 500 UG, 1 DF/ 3 WEEKS
     Route: 058
     Dates: start: 20091112
  7. METFORMIN [Concomitant]
     Indication: TYPE 2 DIABETES MELLITUS
     Dosage: 1000 MG, TID
  8. ASPITRN [Concomitant]
     Dosage: 1 DF, BID
  9. TOFRANIL [Concomitant]
     Dosage: 250 MG, TID
     Route: 048
  10. ZOLPIDEM [Concomitant]
     Dosage: 1 DF, QD
     Route: 048

REACTIONS (2)
  - BLINDNESS UNILATERAL [None]
  - RETINAL VEIN OCCLUSION [None]
